FAERS Safety Report 15233550 (Version 1)
Quarter: 2018Q3

REPORT INFORMATION
  Report Type: Spontaneous
  Country: US (occurrence: US)
  Receive Date: 20180802
  Receipt Date: 20180802
  Transmission Date: 20181010
  Serious: Yes (Other)
  Sender: FDA-Public Use
  Company Number: US-PFIZER INC-2018309186

PATIENT
  Age: 31 Year
  Sex: Male

DRUGS (3)
  1. ZOFRAN [Suspect]
     Active Substance: ONDANSETRON HYDROCHLORIDE
     Dosage: UNK
  2. MUCOMYST [Suspect]
     Active Substance: ACETYLCYSTEINE
     Dosage: UNK
  3. MORPHINE SULFATE. [Suspect]
     Active Substance: MORPHINE SULFATE
     Dosage: UNK

REACTIONS (2)
  - Anaphylactic reaction [Unknown]
  - Drug hypersensitivity [Unknown]
